FAERS Safety Report 21452697 (Version 2)
Quarter: 2022Q4

REPORT INFORMATION
  Report Type: Report from Study
  Country: ES (occurrence: None)
  Receive Date: 20221013
  Receipt Date: 20221121
  Transmission Date: 20230113
  Serious: Yes (Hospitalization)
  Sender: FDA-Public Use
  Company Number: ES-ROCHE-3197033

PATIENT
  Age: 67 Year
  Sex: Female

DRUGS (7)
  1. ATEZOLIZUMAB [Suspect]
     Active Substance: ATEZOLIZUMAB
     Indication: Breast cancer
     Dosage: LAST DOSE PRIOR TO SAE 01/SEP/2022
     Route: 041
     Dates: start: 20220714, end: 20220922
  2. OMEPRAZOLE [Concomitant]
     Active Substance: OMEPRAZOLE
     Route: 048
     Dates: start: 20220922
  3. LORAZEPAM [Concomitant]
     Active Substance: LORAZEPAM
     Route: 048
  4. URSOBILANE [Concomitant]
     Route: 048
  5. NOLOTIL [Concomitant]
     Route: 048
  6. ACETAMINOPHEN [Concomitant]
     Active Substance: ACETAMINOPHEN
     Route: 048
  7. ONDANSETRON [Concomitant]
     Active Substance: ONDANSETRON
     Route: 048

REACTIONS (1)
  - Acute kidney injury [Recovering/Resolving]

NARRATIVE: CASE EVENT DATE: 20220922
